FAERS Safety Report 5759129-8 (Version None)
Quarter: 2008Q2

REPORT INFORMATION
  Report Type: 
  Country: None (occurrence: None)
  Receive Date: 20080604
  Receipt Date: 20080527
  Transmission Date: 20081010
  Serious: No
  Sender: FDA-Public Use
  Company Number: US-BOEHRINGER INGELHEIM GMBH, GERMANY-2008-BP-08173BP

PATIENT
  Age: 78 Year
  Sex: Female

DRUGS (4)
  1. COMBIVENT [Suspect]
     Indication: CHRONIC OBSTRUCTIVE PULMONARY DISEASE
     Route: 055
     Dates: start: 20040101
  2. TYLENOL [Concomitant]
     Indication: ARTHRITIS
  3. PULMICORT [Concomitant]
     Indication: CHRONIC OBSTRUCTIVE PULMONARY DISEASE
  4. ATROVENT NASAL [Concomitant]
     Indication: SEASONAL ALLERGY

REACTIONS (2)
  - CANDIDIASIS [None]
  - THERAPEUTIC RESPONSE DECREASED [None]
